FAERS Safety Report 5870312-3 (Version None)
Quarter: 2008Q3

REPORT INFORMATION
  Report Type: 
  Country: None (occurrence: None)
  Receive Date: 20080904
  Receipt Date: 20070906
  Transmission Date: 20090109
  Serious: No
  Sender: FDA-Public Use
  Company Number: US-BRISTOL-MYERS SQUIBB COMPANY-13899927

PATIENT
  Age: 77 Year
  Sex: Male
  Weight: 95 kg

DRUGS (7)
  1. DEFINITY [Suspect]
     Indication: CARDIAC PHARMACOLOGIC STRESS TEST
     Dates: start: 20070906, end: 20070906
  2. PRILOSEC [Concomitant]
  3. NAPROXEN [Concomitant]
  4. NITROGLYCERIN [Concomitant]
  5. TOPROL-XL [Concomitant]
  6. MICARDIS [Concomitant]
  7. ASPIRIN [Concomitant]

REACTIONS (1)
  - BACK PAIN [None]
